FAERS Safety Report 7599589-3 (Version None)
Quarter: 2011Q3

REPORT INFORMATION
  Report Type: 
  Country: None (occurrence: None)
  Receive Date: 20110711
  Receipt Date: 20110701
  Transmission Date: 20111222
  Serious: No
  Sender: FDA-Public Use
  Company Number: AR-AMGEN-ARGSP2011029061

PATIENT
  Age: 63 Year
  Sex: Female
  Weight: 66 kg

DRUGS (2)
  1. ENBREL [Suspect]
     Indication: PSORIATIC ARTHROPATHY
     Dosage: 50 MG, WEEKLY
     Route: 058
     Dates: start: 20101101, end: 20110101
  2. METHOTREXATE [Concomitant]
     Dosage: UNK

REACTIONS (4)
  - ARTHRALGIA [None]
  - APPLICATION SITE ERYTHEMA [None]
  - BURNING SENSATION [None]
  - PSORIASIS [None]
